FAERS Safety Report 8874282 (Version 1)
Quarter: 2012Q4

REPORT INFORMATION
  Report Type: Report from Study
  Country: US (occurrence: US)
  Receive Date: 20121031
  Receipt Date: 20121031
  Transmission Date: 20130627
  Serious: Yes (Hospitalization)
  Sender: FDA-Public Use
  Company Number: US-BIOGENIDEC-2012BI048383

PATIENT
  Age: 78 Year
  Sex: Male
  Weight: 77 kg

DRUGS (13)
  1. TYSABRI [Suspect]
     Indication: MULTIPLE SCLEROSIS
     Route: 042
     Dates: start: 20080617
  2. ANTIVERT [Concomitant]
     Dates: start: 20111011
  3. HYDROCHLOROTHIAZIDE [Concomitant]
     Indication: MULTIPLE SCLEROSIS
     Dates: start: 20120601
  4. LASIX [Concomitant]
     Dates: start: 20111011
  5. MIRAPEX [Concomitant]
     Dates: start: 20120809
  6. NEXIUM [Concomitant]
     Dates: start: 20120904
  7. POTASSIUM CHLORIDE [Concomitant]
     Dates: start: 20120404
  8. PREDNISONE [Concomitant]
     Route: 048
     Dates: start: 20120601
  9. SMOOTH MOVE LAXATIVE TEA [Concomitant]
     Dates: start: 20120201
  10. TEGRATOL [Concomitant]
     Dates: start: 20120524
  11. VIMPAT [Concomitant]
     Dates: start: 20120524
  12. VITAMIN B12 [Concomitant]
     Dates: start: 20100420
  13. VITAMIN D [Concomitant]
     Dates: start: 20101223

REACTIONS (1)
  - Nerve compression [Recovered/Resolved]
